FAERS Safety Report 9171636 (Version 2)
Quarter: 2013Q3

REPORT INFORMATION
  Report Type: Report from Study
  Country: DE (occurrence: DE)
  Receive Date: 20130319
  Receipt Date: 20130821
  Transmission Date: 20140515
  Serious: Yes (Hospitalization)
  Sender: FDA-Public Use
  Company Number: DE-GLAXOSMITHKLINE-B0875655A

PATIENT
  Age: 41 Year
  Sex: Female
  Weight: 62 kg

DRUGS (7)
  1. LAPATINIB [Suspect]
     Indication: BREAST CANCER
     Dosage: 500MG PER DAY
     Route: 048
     Dates: start: 20120903
  2. MYOCET [Suspect]
     Indication: BREAST CANCER
     Dosage: 15MGM2 PER DAY
     Route: 042
     Dates: start: 20120903
  3. PACLITAXEL [Suspect]
     Indication: BREAST CANCER
     Dosage: 60MGM2 PER DAY
     Route: 042
     Dates: start: 20120903
  4. CARBOPLATIN [Suspect]
     Indication: BREAST CANCER
     Route: 042
     Dates: start: 20120903
  5. ZOFRAN [Concomitant]
     Dosage: 8MG PER DAY
     Dates: start: 20121030, end: 20130207
  6. ERYPO [Concomitant]
     Dates: start: 20121227
  7. METOPROLOL [Concomitant]
     Dosage: 50MG PER DAY
     Dates: start: 20120928

REACTIONS (1)
  - Febrile neutropenia [Recovered/Resolved]
